FAERS Safety Report 9321142 (Version 1)
Quarter: 2013Q2

REPORT INFORMATION
  Report Type: Spontaneous
  Country: US (occurrence: None)
  Receive Date: 20130528
  Receipt Date: 20130528
  Transmission Date: 20140414
  Serious: Yes (Death)
  Sender: FDA-Public Use
  Company Number: 2012AP002130

PATIENT
  Age: 28 Year
  Sex: Female
  Weight: 45.5 kg

DRUGS (1)
  1. FERRIPROX [Suspect]
     Indication: IRON OVERLOAD
     Route: 048
     Dates: start: 201206, end: 20120707

REACTIONS (2)
  - Hospitalisation [None]
  - Cardiac failure [None]
